FAERS Safety Report 9958585 (Version 2)
Quarter: 2014Q1

REPORT INFORMATION
  Report Type: Spontaneous
  Country: DE (occurrence: DE)
  Receive Date: 20140305
  Receipt Date: 20140305
  Transmission Date: 20141002
  Serious: Yes (Other)
  Sender: FDA-Public Use
  Company Number: DE-ROCHE-1330277

PATIENT
  Age: 76 Year
  Sex: Male

DRUGS (3)
  1. MABTHERA [Suspect]
     Indication: CHRONIC LYMPHOCYTIC LEUKAEMIA
     Dosage: 6 CYCLES
     Route: 065
  2. MABTHERA [Suspect]
     Indication: MANTLE CELL LYMPHOMA
  3. BENDAMUSTINE [Concomitant]
     Indication: MANTLE CELL LYMPHOMA
     Dosage: 6 CYCLES
     Route: 065

REACTIONS (4)
  - Pain in extremity [Unknown]
  - Nerve injury [Unknown]
  - Paraesthesia [Unknown]
  - Joint instability [Unknown]
